FAERS Safety Report 13118418 (Version 1)
Quarter: 2017Q1

REPORT INFORMATION
  Report Type: Spontaneous
  Country: US (occurrence: US)
  Receive Date: 20170116
  Receipt Date: 20170116
  Transmission Date: 20170428
  Serious: No
  Sender: FDA-Public Use
  Company Number: US-BAYER-2017-007196

PATIENT
  Sex: Female

DRUGS (1)
  1. CLIMARA [Suspect]
     Active Substance: ESTRADIOL
     Dosage: UNK
     Route: 062
     Dates: start: 1998, end: 1998

REACTIONS (4)
  - Lip exfoliation [None]
  - Drug hypersensitivity [None]
  - Cheilitis [None]
  - Lip haemorrhage [None]

NARRATIVE: CASE EVENT DATE: 1998
